FAERS Safety Report 7367547-X (Version None)
Quarter: 2011Q1

REPORT INFORMATION
  Report Type: 
  Country: None (occurrence: None)
  Receive Date: 20110322
  Receipt Date: 20110317
  Transmission Date: 20110831
  Serious: Yes (Disabling)
  Sender: FDA-Public Use
  Company Number: GB-EISAI INC-E2020-08795-SPO-GB

PATIENT
  Age: 81 Year
  Sex: Male
  Weight: 70 kg

DRUGS (6)
  1. WARFARIN SODIUM [Concomitant]
  2. BISOPROLOL FUMARATE [Concomitant]
  3. AMIODARONE HCL [Concomitant]
  4. TRAZODONE HYDROCHLORIDE [Suspect]
     Route: 048
     Dates: start: 20110307, end: 20110308
  5. ARICEPT [Suspect]
     Indication: DEMENTIA ALZHEIMER'S TYPE
     Route: 048
     Dates: end: 20110310
  6. RAMIPRIL [Concomitant]

REACTIONS (3)
  - FATIGUE [None]
  - MYOCLONUS [None]
  - SEROTONIN SYNDROME [None]
